FAERS Safety Report 4600726-0 (Version None)
Quarter: 2005Q1

REPORT INFORMATION
  Report Type: 
  Country: None (occurrence: None)
  Receive Date: 20050303
  Receipt Date: 20050222
  Transmission Date: 20050727
  Serious: Yes (Other)
  Sender: FDA-Public Use
  Company Number: 601933

PATIENT
  Age: 26 Year
  Sex: Male

DRUGS (2)
  1. AUTOPLEX [Suspect]
     Indication: FACTOR VIII DEFICIENCY
     Dosage: INTRAVENOUS
     Route: 042
     Dates: start: 19880101, end: 19900101
  2. KONYNE [Suspect]
     Indication: FACTOR VIII DEFICIENCY
     Dates: start: 19800101, end: 19880101

REACTIONS (2)
  - HEPATITIS C VIRUS [None]
  - PHARMACEUTICAL PRODUCT COMPLAINT [None]
